FAERS Safety Report 4459224-X (Version None)
Quarter: 2004Q3

REPORT INFORMATION
  Report Type: 
  Country: None (occurrence: None)
  Receive Date: 20040927
  Receipt Date: 20040923
  Transmission Date: 20050211
  Serious: Yes (Other)
  Sender: FDA-Public Use
  Company Number: US-JNJFOC-20040907872

PATIENT
  Sex: Female

DRUGS (1)
  1. KETOCONAZOLE [Suspect]
     Indication: DRUG USE FOR UNKNOWN INDICATION
     Dosage: 6-8 WEEKS OF THERAPY
     Route: 065

REACTIONS (3)
  - HEPATIC NECROSIS [None]
  - HEPATITIS [None]
  - IDIOSYNCRATIC DRUG REACTION [None]
